FAERS Safety Report 20725856 (Version 2)
Quarter: 2022Q4

REPORT INFORMATION
  Report Type: Report from Study
  Country: US (occurrence: US)
  Receive Date: 20220419
  Receipt Date: 20221025
  Transmission Date: 20230112
  Serious: No
  Sender: FDA-Public Use
  Company Number: US-SA-SAC20220418000114

PATIENT
  Age: 8 Year
  Sex: Female
  Weight: 54 kg

DRUGS (2)
  1. DUPILUMAB [Suspect]
     Active Substance: DUPILUMAB
     Indication: Dermatitis atopic
     Dosage: 300 MG, QOW
     Route: 058
     Dates: start: 20210908
  2. DUPILUMAB [Suspect]
     Active Substance: DUPILUMAB
     Dosage: 200 MG
     Route: 058
     Dates: start: 202110

REACTIONS (3)
  - Dermatitis atopic [Not Recovered/Not Resolved]
  - Off label use of device [Unknown]
  - Off label use [Unknown]

NARRATIVE: CASE EVENT DATE: 20211013
